FAERS Safety Report 5457353-5 (Version None)
Quarter: 2007Q3

REPORT INFORMATION
  Report Type: 
  Country: None (occurrence: None)
  Receive Date: 20070918
  Receipt Date: 20070514
  Transmission Date: 20080115
  Serious: Yes (Hospitalization)
  Sender: FDA-Public Use
  Company Number: US-ASTRAZENECA-2007UW03104

PATIENT
  Sex: Male
  Weight: 74.8 kg

DRUGS (8)
  1. SEROQUEL [Suspect]
     Indication: SCHIZOAFFECTIVE DISORDER
     Route: 048
  2. SEROQUEL [Suspect]
     Route: 048
     Dates: start: 20010101
  3. ABILIFY [Concomitant]
  4. WELLBUTRIN [Concomitant]
  5. PROPRANOLOL [Concomitant]
  6. DOXEPIN HCL [Concomitant]
  7. BENZOTROPINE [Concomitant]
  8. FLUPHENAZINE [Concomitant]

REACTIONS (10)
  - ABNORMAL DREAMS [None]
  - ACCIDENTAL OVERDOSE [None]
  - AMNESIA [None]
  - ANOREXIA [None]
  - ASTHMA [None]
  - GASTROOESOPHAGEAL REFLUX DISEASE [None]
  - MUSCLE TWITCHING [None]
  - TOOTH LOSS [None]
  - VOMITING [None]
  - WEIGHT INCREASED [None]
